FAERS Safety Report 7651654-8 (Version None)
Quarter: 2011Q3

REPORT INFORMATION
  Report Type: 
  Country: None (occurrence: None)
  Receive Date: 20110802
  Receipt Date: 20110725
  Transmission Date: 20111222
  Serious: Yes (Other)
  Sender: FDA-Public Use
  Company Number: US-ASTRAZENECA-2011SE44693

PATIENT
  Age: 80 Year
  Sex: Female

DRUGS (2)
  1. CRESTOR [Suspect]
     Route: 048
  2. METOPROLOL SUCCINATE [Concomitant]

REACTIONS (3)
  - CARDIAC VALVE DISEASE [None]
  - ATRIAL FIBRILLATION [None]
  - ARRHYTHMIA [None]
